FAERS Safety Report 14656845 (Version 1)
Quarter: 2018Q1

REPORT INFORMATION
  Report Type: Spontaneous
  Country: US (occurrence: US)
  Receive Date: 20180319
  Receipt Date: 20180319
  Transmission Date: 20180509
  Serious: No
  Sender: FDA-Public Use
  Company Number: US-SA-2017SA093456

PATIENT
  Age: 3 Year
  Sex: Male

DRUGS (2)
  1. NASACORT ALLERGY 24HR [Suspect]
     Active Substance: TRIAMCINOLONE ACETONIDE
     Indication: NASAL CONGESTION
     Route: 065
     Dates: start: 20170516
  2. NASACORT ALLERGY 24HR [Suspect]
     Active Substance: TRIAMCINOLONE ACETONIDE
     Indication: DYSPNOEA
     Route: 065
     Dates: start: 20170516

REACTIONS (1)
  - Cough [Unknown]

NARRATIVE: CASE EVENT DATE: 20170517
